FAERS Safety Report 11202911 (Version 3)
Quarter: 2015Q3

REPORT INFORMATION
  Report Type: Spontaneous
  Country: US (occurrence: US)
  Receive Date: 20150619
  Receipt Date: 20150702
  Transmission Date: 20151125
  Serious: Yes (Life-Threatening, Hospitalization, Disabling, Other)
  Sender: FDA-Public Use
  Company Number: US-MERCK-1506USA008949

PATIENT
  Sex: Female

DRUGS (1)
  1. JANUVIA [Suspect]
     Active Substance: SITAGLIPTIN PHOSPHATE
     Indication: TYPE 2 DIABETES MELLITUS
     Dosage: 50 MG, UNKNOWN
     Route: 048

REACTIONS (4)
  - Blood glucose decreased [Recovering/Resolving]
  - Cerebrovascular accident [Recovering/Resolving]
  - Renal impairment [Recovering/Resolving]
  - Gait disturbance [Recovering/Resolving]
